FAERS Safety Report 8014854-3 (Version None)
Quarter: 2011Q4

REPORT INFORMATION
  Report Type: 
  Country: None (occurrence: None)
  Receive Date: 20111229
  Receipt Date: 20111222
  Transmission Date: 20120403
  Serious: No
  Sender: FDA-Public Use
  Company Number: JP-SANOFI-AVENTIS-2011SA081341

PATIENT
  Age: 50 Year
  Sex: Male

DRUGS (4)
  1. OXALIPLATIN [Suspect]
     Indication: COLON CANCER
     Dosage: TOTAL; 8 CYCLES
     Route: 041
     Dates: start: 20110804, end: 20111124
  2. FLUOROURACIL [Suspect]
     Dosage: 400 MG/M2 BOLUS THEN 2400 MG/M2/D1-2 AS CONTINOUS INFUSION
     Route: 041
     Dates: start: 20110804, end: 20111124
  3. FLUOROURACIL [Suspect]
     Indication: COLON CANCER
     Dosage: 400 MG/M2 BOLUS THEN 2400 MG/M2/D1-2 AS CONTINOUS INFUSION
     Route: 040
     Dates: start: 20110804, end: 20111124
  4. LEVOLEUCOVORIN CALCIUM [Concomitant]
     Indication: COLON CANCER
     Route: 041
     Dates: start: 20110804, end: 20111124

REACTIONS (1)
  - MYELODYSPLASTIC SYNDROME [None]
